FAERS Safety Report 7945822-5 (Version None)
Quarter: 2011Q4

REPORT INFORMATION
  Report Type: 
  Country: None (occurrence: None)
  Receive Date: 20111129
  Receipt Date: 20111115
  Transmission Date: 20120403
  Serious: Yes (Other)
  Sender: FDA-Public Use
  Company Number: PHFR2011GB006644

PATIENT
  Age: 54 Year
  Sex: Male

DRUGS (1)
  1. GLEEVEC [Suspect]
     Indication: CHRONIC MYELOID LEUKAEMIA
     Dosage: 400 MG, QD

REACTIONS (7)
  - ARTHRALGIA [None]
  - OCULAR HYPERAEMIA [None]
  - FATIGUE [None]
  - NAUSEA [None]
  - WEIGHT INCREASED [None]
  - MUSCLE SPASMS [None]
  - OEDEMA [None]
